FAERS Safety Report 7191081-3 (Version None)
Quarter: 2010Q4

REPORT INFORMATION
  Report Type: 
  Country: None (occurrence: None)
  Receive Date: 20101223
  Receipt Date: 20100811
  Transmission Date: 20110411
  Serious: No
  Sender: FDA-Public Use
  Company Number: US-AMGEN-KDL430686

PATIENT

DRUGS (17)
  1. ENBREL [Suspect]
     Indication: PRODUCT USED FOR UNKNOWN INDICATION
     Dosage: 50 MG, QWK
     Route: 058
  2. CENTRUM SILVER [Concomitant]
     Dosage: UNK UNK, UNK
  3. PANTOPRAZOLE SODIUM [Concomitant]
     Dosage: 40 MG, UNK
  4. AMLODIPINE [Concomitant]
     Dosage: 5 MG, UNK
  5. METHOTREXATE [Concomitant]
     Dosage: 2.5 MG, UNK
  6. VALSARTAN [Concomitant]
     Dosage: 80 MG, UNK
  7. METOPROLOL TARTRATE [Concomitant]
     Dosage: 50 MG, UNK
  8. SIMVASTATIN [Concomitant]
     Dosage: 20 MG, UNK
  9. FEXOFENADINE HCL [Concomitant]
     Dosage: 30 MG, UNK
  10. FOLIC ACID [Concomitant]
     Dosage: 1 MG, UNK
  11. FLUTICASONE PROPIONATE [Concomitant]
     Dosage: .05 %, UNK
  12. CLOPIDOGREL BISULFATE [Concomitant]
     Dosage: 75 MG, UNK
  13. CYANOCOBALAMIN [Concomitant]
     Dosage: 1000 A?G, UNK
  14. FLAX SEED OIL [Concomitant]
  15. ASPIRIN [Concomitant]
     Dosage: 81 MG, UNK
  16. LYSINE [Concomitant]
     Dosage: 1000 MG, UNK
  17. CORTISONE [Concomitant]
     Dosage: 1 %, UNK

REACTIONS (2)
  - INJECTION SITE ERYTHEMA [None]
  - INJECTION SITE PAIN [None]
